FAERS Safety Report 6057244-5 (Version None)
Quarter: 2009Q1

REPORT INFORMATION
  Report Type: 
  Country: None (occurrence: None)
  Receive Date: 20090129
  Receipt Date: 20080529
  Transmission Date: 20090719
  Serious: No
  Sender: FDA-Public Use
  Company Number: A0730182A

PATIENT
  Age: 59 Year
  Sex: Male

DRUGS (5)
  1. WELLBUTRIN [Suspect]
     Dosage: 75MG TWICE PER DAY
     Route: 048
     Dates: start: 20080521
  2. PLAVIX [Concomitant]
  3. ATENOLOL [Concomitant]
  4. ANTICOAGULANT ETHYLENEDIAMINE TETRAACETIC ACID (EDTA) [Concomitant]
  5. HOMEOPATHIC MEDICINE [Concomitant]

REACTIONS (3)
  - DIZZINESS [None]
  - DRUG INEFFECTIVE [None]
  - NAUSEA [None]
